FAERS Safety Report 19839281 (Version 1)
Quarter: 2021Q3

REPORT INFORMATION
  Report Type: Spontaneous
  Country: US (occurrence: US)
  Receive Date: 20210916
  Receipt Date: 20210916
  Transmission Date: 20211014
  Serious: No
  Sender: FDA-Public Use
  Company Number: US-BAUSCH-BL-2021-027785

PATIENT
  Age: 49 Year
  Sex: Male
  Weight: 88.53 kg

DRUGS (4)
  1. METFORMIN [Concomitant]
     Active Substance: METFORMIN HYDROCHLORIDE
     Indication: PRODUCT USED FOR UNKNOWN INDICATION
     Route: 048
  2. LUMIFY [Suspect]
     Active Substance: BRIMONIDINE TARTRATE
     Dosage: RECENTLY PURCHASED BOTTLE? BURNING NOTED; USED ON ON ONE EYE
     Route: 047
     Dates: start: 20210809, end: 20210809
  3. LUMIFY [Suspect]
     Active Substance: BRIMONIDINE TARTRATE
     Indication: OCULAR HYPERAEMIA
     Dosage: USER FOR OVER A YEAR; ONE DROP IN EACH EYE ONCE DAILY
     Route: 047
     Dates: end: 2021
  4. LUMIFY [Suspect]
     Active Substance: BRIMONIDINE TARTRATE
     Dosage: NEW BOTTLE (NO BURNING NOTED)
     Route: 047
     Dates: start: 20210810

REACTIONS (2)
  - Product quality issue [Unknown]
  - Instillation site pain [Recovered/Resolved]

NARRATIVE: CASE EVENT DATE: 20210809
